FAERS Safety Report 6257574-8 (Version None)
Quarter: 2009Q3

REPORT INFORMATION
  Report Type: 
  Country: None (occurrence: None)
  Receive Date: 20090702
  Receipt Date: 20090622
  Transmission Date: 20100115
  Serious: Yes (Hospitalization)
  Sender: FDA-Public Use
  Company Number: FABR-11464

PATIENT
  Age: 69 Year
  Sex: Female
  Weight: 50 kg

DRUGS (13)
  1. FABRAZYME       (AGAISIDASE BETA) POWDER FOR SOLUTION FOR INFUSION [Suspect]
     Indication: FABRY'S DISEASE
     Dosage: 50 MG, Q2W, INTRAVENOUS
     Route: 042
     Dates: start: 20060428
  2. ALACEPRIL (ALACEPRIL) [Concomitant]
  3. URSODESOXYCHOLIC ACID [Concomitant]
  4. ASPIRIN [Concomitant]
  5. SPIRONOLACTONE [Concomitant]
  6. FUROSEMIDE [Concomitant]
  7. FUROSEMIDE [Concomitant]
  8. LEVOTHYROXINE SODIUM [Concomitant]
  9. WARFARIN SODIUM [Concomitant]
  10. CANDESARTAN CILEXETIL [Concomitant]
  11. SULPIRIDE (SULPIRIDE) [Concomitant]
  12. ALLPURINOL [Concomitant]
  13. CALCIUM POLYSTYRENE SULFONATE (CALCIUM POLYSTYRENE SULFONATE) [Concomitant]

REACTIONS (4)
  - CARDIAC FAILURE CHRONIC [None]
  - CHOLELITHIASIS [None]
  - GASTRIC ULCER [None]
  - INSOMNIA [None]
